FAERS Safety Report 15306908 (Version 1)
Quarter: 2018Q3

REPORT INFORMATION
  Report Type: Spontaneous
  Country: MY (occurrence: MY)
  Receive Date: 20180822
  Receipt Date: 20180822
  Transmission Date: 20181010
  Serious: Yes (Other)
  Sender: FDA-Public Use
  Company Number: MY-MYLANLABS-2018M1062602

PATIENT
  Sex: Male

DRUGS (8)
  1. ARIPIPRAZOLE. [Concomitant]
     Active Substance: ARIPIPRAZOLE
     Indication: DEPRESSION
     Route: 065
  2. KETAMINE [Suspect]
     Active Substance: KETAMINE
     Indication: DEPRESSION
     Dosage: TWICE A WEEK
     Route: 041
  3. LAMOTRIGINE. [Concomitant]
     Active Substance: LAMOTRIGINE
     Indication: DEPRESSION
     Route: 065
  4. KETAMINE [Suspect]
     Active Substance: KETAMINE
     Indication: SUICIDAL IDEATION
     Dosage: WEEKLY
     Route: 041
  5. ARIPIPRAZOLE. [Concomitant]
     Active Substance: ARIPIPRAZOLE
     Indication: SUICIDAL IDEATION
  6. ESCITALOPRAM [Concomitant]
     Active Substance: ESCITALOPRAM OXALATE
     Indication: DEPRESSION
     Route: 065
  7. ESCITALOPRAM [Concomitant]
     Active Substance: ESCITALOPRAM OXALATE
     Indication: SUICIDAL IDEATION
  8. LAMOTRIGINE. [Concomitant]
     Active Substance: LAMOTRIGINE
     Indication: SUICIDAL IDEATION

REACTIONS (5)
  - Off label use [Unknown]
  - Hypomania [Unknown]
  - Bipolar disorder [Unknown]
  - Unmasking of previously unidentified disease [Unknown]
  - Dissociative disorder [Recovered/Resolved]
